FAERS Safety Report 4737181-6 (Version None)
Quarter: 2005Q3

REPORT INFORMATION
  Report Type: 
  Country: None (occurrence: None)
  Receive Date: 20050728
  Receipt Date: 20050510
  Transmission Date: 20060218
  Serious: No
  Sender: FDA-Public Use
  Company Number: 200514061US

PATIENT
  Age: 31 Year
  Sex: Male

DRUGS (6)
  1. KETEK [Suspect]
     Indication: SINUSITIS
     Dosage: 800 MG QD PO
     Route: 048
     Dates: start: 20050311, end: 20050315
  2. ZYRTEC [Concomitant]
  3. FLUTICASONE PROPIONATE (FLONASE) [Concomitant]
  4. PREVACID [Concomitant]
  5. TEMAZEPAM (RESTORIL) [Concomitant]
  6. TRAZODONE [Concomitant]

REACTIONS (1)
  - DEPRESSION [None]
